FAERS Safety Report 26097743 (Version 1)
Quarter: 2025Q4

REPORT INFORMATION
  Report Type: Report from Study
  Country: US (occurrence: US)
  Receive Date: 20251127
  Receipt Date: 20251127
  Transmission Date: 20260118
  Serious: Yes (Death, Other)
  Sender: SANOFI AVENTIS
  Company Number: US-DialogSolutions-SAAVPROD-PI846101-C3

PATIENT

DRUGS (3)
  1. DOCETAXEL [Suspect]
     Active Substance: DOCETAXEL
     Indication: Non-small cell lung cancer
     Dosage: 35 MG/M2, QW (ON DAY 1, 8 AND 15) (28 DAY CYCLE FOR THRE CYCLES)
  2. DEXAMETHASONE [Suspect]
     Active Substance: DEXAMETHASONE
     Dosage: 4 MG (FOR THREE DOSES (THE EVENING BEFORE TREATMENT, THE MORNING OF TREATMENT, AND THE EVENING OF TH
     Route: 048
  3. VINORELBINE [Suspect]
     Active Substance: VINORELBINE TARTRATE
     Indication: Non-small cell lung cancer
     Dosage: 25 MG/M2, QW (ON DAYS 1 AND 8 OF A 21-DAY CYCLE FOR THREE CYCLES)
     Route: 042

REACTIONS (3)
  - Renal failure [Fatal]
  - Conduction disorder [Fatal]
  - Dyspnoea [Fatal]
